FAERS Safety Report 7821443-X (Version None)
Quarter: 2011Q4

REPORT INFORMATION
  Report Type: 
  Country: None (occurrence: None)
  Receive Date: 20111018
  Receipt Date: 20111012
  Transmission Date: 20120403
  Serious: Yes (Hospitalization)
  Sender: FDA-Public Use
  Company Number: US-ACTELION-A-US2011-48958

PATIENT

DRUGS (2)
  1. TRACLEER [Suspect]
     Indication: PULMONARY EMBOLISM
     Dosage: UNK
     Route: 048
     Dates: start: 20110321
  2. ADCIRCA [Concomitant]

REACTIONS (5)
  - ABDOMINAL DISTENSION [None]
  - RIB FRACTURE [None]
  - CONVULSION [None]
  - RASH [None]
  - SYNCOPE [None]
